FAERS Safety Report 17094137 (Version 2)
Quarter: 2019Q4

REPORT INFORMATION
  Report Type: Spontaneous
  Country: JP (occurrence: JP)
  Receive Date: 20191129
  Receipt Date: 20191211
  Transmission Date: 20200122
  Serious: Yes (Other)
  Sender: FDA-Public Use
  Company Number: JP-ALLERGAN-1948601US

PATIENT
  Sex: Male

DRUGS (4)
  1. TRIAZOLAM. [Concomitant]
     Active Substance: TRIAZOLAM
     Indication: PRODUCT USED FOR UNKNOWN INDICATION
     Route: 048
  2. BROTIZOLAM [Concomitant]
     Active Substance: BROTIZOLAM
     Indication: PRODUCT USED FOR UNKNOWN INDICATION
     Route: 048
  3. ESCITALOPRAM OXALATE - BP [Suspect]
     Active Substance: ESCITALOPRAM OXALATE
     Indication: DEPRESSION
     Dosage: 20 MG, QD
     Route: 048
     Dates: start: 2017
  4. ESCITALOPRAM OXALATE - BP [Suspect]
     Active Substance: ESCITALOPRAM OXALATE
     Dosage: 20 MG EACH IN THE EVENING AND AT BEDTIME (40 MG IN TOTAL)
     Route: 048

REACTIONS (11)
  - Aggression [Unknown]
  - Overdose [Unknown]
  - Impulsive behaviour [Unknown]
  - Suicide attempt [Unknown]
  - Mania [Unknown]
  - Hostility [Unknown]
  - Irritability [Unknown]
  - Insomnia [Unknown]
  - Affect lability [Unknown]
  - Suicidal ideation [Unknown]
  - Agitation [Unknown]
